FAERS Safety Report 9072314 (Version 1)
Quarter: 2013Q1

REPORT INFORMATION
  Report Type: Spontaneous
  Country: None (occurrence: US)
  Receive Date: 20130206
  Receipt Date: 20130206
  Transmission Date: 20140127
  Serious: No
  Sender: FDA-Public Use
  Company Number: US-ALLERGAN-1217300US

PATIENT
  Age: 73 Year
  Sex: Male

DRUGS (4)
  1. RESTASIS? [Suspect]
     Indication: DRY EYE
     Dosage: 2 GTT, UNK
     Route: 047
  2. RESTASIS? [Suspect]
     Dosage: 2 GTT, BID
     Route: 047
     Dates: start: 201211
  3. SYSTANE [Concomitant]
     Indication: DRY EYE
  4. NAPHCON-A                          /00827001/ [Concomitant]
     Indication: DRY EYE

REACTIONS (4)
  - Inappropriate schedule of drug administration [Unknown]
  - Incorrect dose administered [Unknown]
  - Eye irritation [Unknown]
  - Vision blurred [Unknown]
